FAERS Safety Report 15409058 (Version 1)
Quarter: 2018Q3

REPORT INFORMATION
  Report Type: Spontaneous
  Country: US (occurrence: US)
  Receive Date: 20180920
  Receipt Date: 20180920
  Transmission Date: 20181010
  Serious: No
  Sender: FDA-Public Use
  Company Number: US-PFIZER INC-2018379459

PATIENT
  Sex: Female

DRUGS (4)
  1. LYRICA [Suspect]
     Active Substance: PREGABALIN
     Dosage: 3 (UNIT UNSPECIFIED), UNK
  2. LYRICA [Suspect]
     Active Substance: PREGABALIN
     Dosage: 1 (UNIT UNSPECIFIED), UNK
  3. LYRICA [Suspect]
     Active Substance: PREGABALIN
     Indication: PAIN
     Dosage: 4 (UNIT UNSPECIFIED), UNK
  4. LYRICA [Suspect]
     Active Substance: PREGABALIN
     Dosage: 2 (UNIT UNSPECIFIED), UNK

REACTIONS (1)
  - Drug withdrawal syndrome [Unknown]

NARRATIVE: CASE EVENT DATE: 2018
